FAERS Safety Report 9723121 (Version 1)
Quarter: 2013Q4

REPORT INFORMATION
  Report Type: Spontaneous
  Country: US (occurrence: None)
  Receive Date: 20131127
  Receipt Date: 20131127
  Transmission Date: 20140711
  Serious: Yes (Other)
  Sender: FDA-Public Use
  Company Number: None

PATIENT
  Age: 40 Year
  Sex: Female
  Weight: 49.9 kg

DRUGS (4)
  1. MIRTAZAPINE [Suspect]
     Indication: STRESS
     Route: 048
     Dates: start: 20121211, end: 20121221
  2. LANTUS [Concomitant]
  3. METFORMAN ER [Concomitant]
  4. KEPPRA [Concomitant]

REACTIONS (2)
  - Blood glucose decreased [None]
  - Abnormal behaviour [None]
